FAERS Safety Report 25373165 (Version 1)
Quarter: 2025Q2

REPORT INFORMATION
  Report Type: Spontaneous
  Country: US (occurrence: US)
  Receive Date: 20250529
  Receipt Date: 20250529
  Transmission Date: 20250716
  Serious: No
  Sender: CIPLA
  Company Number: US-CIPLA LTD.-2024US07699

PATIENT

DRUGS (2)
  1. ALBUTEROL [Suspect]
     Active Substance: ALBUTEROL
     Indication: Bronchitis
     Dates: start: 20240710
  2. PREDNISONE [Concomitant]
     Active Substance: PREDNISONE
     Indication: Pulmonary fibrosis
     Route: 065
     Dates: start: 202201, end: 202201

REACTIONS (3)
  - Drug dose omission by device [Not Recovered/Not Resolved]
  - Device delivery system issue [Not Recovered/Not Resolved]
  - Device issue [Unknown]

NARRATIVE: CASE EVENT DATE: 20240711
